FAERS Safety Report 25936859 (Version 1)
Quarter: 2025Q4

REPORT INFORMATION
  Report Type: Spontaneous
  Country: US (occurrence: US)
  Receive Date: 20251017
  Receipt Date: 20251017
  Transmission Date: 20260118
  Serious: No
  Sender: DR REDDYS
  Company Number: US-DRL-USA-USA/2025/10/015476

PATIENT
  Sex: Female

DRUGS (1)
  1. FAMOTIDINE [Suspect]
     Active Substance: FAMOTIDINE
     Indication: Product used for unknown indication
     Dosage: PATIENT IS TAKING ONE TABLET BY MOUTH EVERY MORNING AND TWO TABLETS BY MOUTH EVERY EVENING.
     Route: 048

REACTIONS (1)
  - Pain [Unknown]
